FAERS Safety Report 7094613-9 (Version None)
Quarter: 2010Q4

REPORT INFORMATION
  Report Type: 
  Country: None (occurrence: None)
  Receive Date: 20101110
  Receipt Date: 20101108
  Transmission Date: 20110411
  Serious: Yes (Hospitalization, Other)
  Sender: FDA-Public Use
  Company Number: NO-PFIZER INC-2010122831

PATIENT
  Age: 43 Year
  Sex: Female

DRUGS (3)
  1. NEURONTIN [Suspect]
     Indication: TRIGEMINAL NEURALGIA
     Dosage: UNK
  2. PARACET [Concomitant]
     Indication: PAIN
     Dosage: 500 MG, 3X/DAY
  3. PARALGIN FORTE [Concomitant]
     Indication: PAIN
     Dosage: 400MG/30MG, 3X/DAY

REACTIONS (3)
  - DRUG INTOLERANCE [None]
  - EYE DISORDER [None]
  - NAUSEA [None]
